FAERS Safety Report 6581060-9 (Version None)
Quarter: 2010Q1

REPORT INFORMATION
  Report Type: 
  Country: None (occurrence: None)
  Receive Date: 20100215
  Receipt Date: 20100202
  Transmission Date: 20100710
  Serious: Yes (Hospitalization)
  Sender: FDA-Public Use
  Company Number: PHEH2009US17334

PATIENT
  Sex: Female

DRUGS (4)
  1. RECLAST [Suspect]
     Dosage: UNK
     Dates: start: 20091203
  2. ZOLOFT [Concomitant]
  3. PERCOCET [Concomitant]
     Dosage: 5/325MG Q6H
  4. FLEXERIL [Concomitant]
     Dosage: 10 MG, Q8H

REACTIONS (8)
  - ABASIA [None]
  - BACK PAIN [None]
  - BLOOD URINE PRESENT [None]
  - BURNING SENSATION [None]
  - MUSCLE SPASMS [None]
  - PAIN [None]
  - PYREXIA [None]
  - URINARY TRACT INFECTION [None]
